FAERS Safety Report 8819545 (Version 1)
Quarter: 2012Q4

REPORT INFORMATION
  Report Type: 
  Country: GB (occurrence: GB)
  Receive Date: 20120930
  Receipt Date: 20120930
  Transmission Date: 20130627
  Serious: Yes (Other)
  Sender: FDA-Public Use
  Company Number: GB-ELI_LILLY_AND_COMPANY-GB201209004175

PATIENT
  Age: 36 Year
  Sex: Male
  Weight: 52.15 kg

DRUGS (3)
  1. OLANZAPINE [Suspect]
     Indication: MENTAL DISORDER
     Dosage: 20 mg, qd
  2. FLUOXETINE [Suspect]
     Dosage: 40 mg, qd
  3. AMISULPRIDE [Concomitant]
     Indication: MENTAL DISORDER
     Dosage: 800 mg, qd

REACTIONS (2)
  - Blood prolactin increased [Unknown]
  - Atrioventricular block first degree [Unknown]
